FAERS Safety Report 18940142 (Version 1)
Quarter: 2021Q1

REPORT INFORMATION
  Report Type: Report from Study
  Country: US (occurrence: US)
  Receive Date: 20210224
  Receipt Date: 20210224
  Transmission Date: 20210420
  Serious: Yes (Hospitalization, Other)
  Sender: FDA-Public Use
  Company Number: US-SUN PHARMACEUTICAL INDUSTRIES LTD-2021R1-281210

PATIENT
  Sex: Female

DRUGS (3)
  1. OXYCODONE [Suspect]
     Active Substance: OXYCODONE
     Indication: ABDOMINAL PAIN
     Dosage: UNK
     Route: 065
  2. CYCLOBENZAPRINE. [Suspect]
     Active Substance: CYCLOBENZAPRINE
     Indication: ABDOMINAL PAIN
     Dosage: UNK
     Route: 065
  3. NALOXONE [Suspect]
     Active Substance: NALOXONE
     Indication: PRODUCT USED FOR UNKNOWN INDICATION
     Dosage: UNK
     Route: 065

REACTIONS (5)
  - Renal tubular necrosis [Unknown]
  - Cardiomyopathy [Unknown]
  - Ischaemic hepatitis [Unknown]
  - Respiratory depression [Unknown]
  - Rhabdomyolysis [Unknown]
